FAERS Safety Report 9924404 (Version 1)
Quarter: 2014Q1

REPORT INFORMATION
  Report Type: Spontaneous
  Country: US (occurrence: None)
  Receive Date: 20140224
  Receipt Date: 20140224
  Transmission Date: 20141002
  Serious: No
  Sender: FDA-Public Use
  Company Number: None

PATIENT
  Age: 46 Year
  Sex: Male
  Weight: 99.79 kg

DRUGS (3)
  1. ALKA-SELTZER PLUS SEVERE ALLERGY SINUS CONGESTION AND HEADACHE FORMULA [Suspect]
     Indication: NASOPHARYNGITIS
  2. ALKA-SELTZER PLUS SEVERE ALLERGY SINUS CONGESTION AND HEADACHE FORMULA [Suspect]
     Indication: RHINORRHOEA
  3. ALKA-SELTZER PLUS SEVERE ALLERGY SINUS CONGESTION AND HEADACHE FORMULA [Suspect]
     Indication: UPPER-AIRWAY COUGH SYNDROME

REACTIONS (2)
  - Product label issue [None]
  - Somnolence [None]
